FAERS Safety Report 6334596-X (Version None)
Quarter: 2009Q3

REPORT INFORMATION
  Report Type: 
  Country: None (occurrence: None)
  Receive Date: 20090831
  Receipt Date: 20090827
  Transmission Date: 20100115
  Serious: Yes (Death, Life-Threatening, Hospitalization)
  Sender: FDA-Public Use
  Company Number: PHHY2009FI33521

PATIENT
  Age: 39 Year
  Sex: Male

DRUGS (2)
  1. SANDOSTATIN LAR [Suspect]
     Indication: ACROMEGALY
     Dosage: UNK
     Dates: start: 20090701
  2. SANDOSTATIN [Suspect]
     Indication: ACROMEGALY
     Dosage: UNK
     Dates: start: 20090701

REACTIONS (3)
  - CEREBRAL INFARCTION [None]
  - GLIOBLASTOMA [None]
  - MALIGNANT NEOPLASM PROGRESSION [None]
